FAERS Safety Report 18959159 (Version 3)
Quarter: 2022Q1

REPORT INFORMATION
  Report Type: Spontaneous
  Country: US (occurrence: US)
  Receive Date: 20210302
  Receipt Date: 20220224
  Transmission Date: 20220423
  Serious: Yes (Other)
  Sender: FDA-Public Use
  Company Number: US-NOVOPROD-789905

PATIENT
  Sex: Female

DRUGS (2)
  1. NOVOLIN R [Suspect]
     Active Substance: INSULIN HUMAN
     Indication: Product used for unknown indication
     Dosage: SLIDING SCALE
     Route: 058
  2. NOVOLIN N [Concomitant]
     Active Substance: INSULIN HUMAN
     Indication: Product used for unknown indication
     Dosage: 26 IU, QD (16 UNITS AM AND 10 UNITS PM)
     Route: 058

REACTIONS (4)
  - Blood glucose increased [Recovering/Resolving]
  - Product odour abnormal [Unknown]
  - Device leakage [Unknown]
  - Blood glucose decreased [Unknown]
